FAERS Safety Report 16470666 (Version 1)
Quarter: 2019Q2

REPORT INFORMATION
  Report Type: Spontaneous
  Country: US (occurrence: US)
  Receive Date: 20190624
  Receipt Date: 20190624
  Transmission Date: 20190711
  Serious: No
  Sender: FDA-Public Use
  Company Number: US-CATALYST PHARMACEUTICALS, INC-2019CAT00135

PATIENT
  Age: 57 Year
  Sex: Female

DRUGS (8)
  1. UNSPECIFIED ANTIBIOTIC [Suspect]
     Active Substance: UNSPECIFIED INGREDIENT
     Dosage: UNK
     Dates: start: 201904
  2. FIRDAPSE [Suspect]
     Active Substance: AMIFAMPRIDINE
     Dosage: UNK (INCREASING BY 5 MG EVERY 4 DAYS)
     Dates: start: 201904, end: 201904
  3. FIRDAPSE [Suspect]
     Active Substance: AMIFAMPRIDINE
     Dosage: 10 MG, 1X/DAY (AROUND 8-9:00 PM)
     Route: 048
     Dates: start: 201904
  4. FIRDAPSE [Suspect]
     Active Substance: AMIFAMPRIDINE
     Dosage: 10 MG, 3X/DAY
     Dates: start: 201904, end: 201904
  5. FIRDAPSE [Suspect]
     Active Substance: AMIFAMPRIDINE
     Dosage: UNK EVERY 4 HOURS
     Route: 048
     Dates: start: 2019
  6. FIRDAPSE [Suspect]
     Active Substance: AMIFAMPRIDINE
     Indication: MYASTHENIC SYNDROME
     Dosage: 5 MG, 3X/DAY
     Dates: start: 2019, end: 20190406
  7. FIRDAPSE [Suspect]
     Active Substance: AMIFAMPRIDINE
     Dosage: 20 MG PER DAY
     Dates: start: 20190407, end: 201904
  8. FIRDAPSE [Suspect]
     Active Substance: AMIFAMPRIDINE
     Dosage: 15 MG, 2X/DAY (9:00 AM AND ABOUT 6 HOURS LATER)
     Route: 048
     Dates: start: 201904

REACTIONS (9)
  - Paraesthesia [Recovering/Resolving]
  - Balance disorder [Unknown]
  - Feeling of body temperature change [Unknown]
  - Therapeutic response delayed [Not Recovered/Not Resolved]
  - Food interaction [Not Recovered/Not Resolved]
  - Clostridium difficile infection [Unknown]
  - Drug ineffective [Not Recovered/Not Resolved]
  - Diarrhoea [Not Recovered/Not Resolved]
  - Abdominal pain [Not Recovered/Not Resolved]

NARRATIVE: CASE EVENT DATE: 2019
